FAERS Safety Report 7599876-9 (Version None)
Quarter: 2011Q3

REPORT INFORMATION
  Report Type: 
  Country: None (occurrence: None)
  Receive Date: 20110711
  Receipt Date: 20110706
  Transmission Date: 20111222
  Serious: No
  Sender: FDA-Public Use
  Company Number: US-PFIZER INC-2011152702

PATIENT
  Sex: Male

DRUGS (1)
  1. DEPO-TESTOSTERONE [Suspect]
     Indication: HYPOGONADISM
     Dosage: 400 MG, EVERY 2 WEEKS
     Dates: start: 20040101

REACTIONS (3)
  - ERYTHEMA [None]
  - DYSPNOEA [None]
  - COUGH [None]
